FAERS Safety Report 7458077-5 (Version None)
Quarter: 2011Q2

REPORT INFORMATION
  Report Type: 
  Country: None (occurrence: None)
  Receive Date: 20110503
  Receipt Date: 20110503
  Transmission Date: 20111010
  Serious: Yes (Hospitalization)
  Sender: FDA-Public Use
  Company Number: None

PATIENT
  Age: 45 Year
  Sex: Female
  Weight: 84.6 kg

DRUGS (1)
  1. LEUPROLIDE ACETATE [Suspect]
     Indication: HAEMORRHAGE
     Dates: start: 20110317, end: 20110317

REACTIONS (2)
  - CHEST DISCOMFORT [None]
  - DYSPNOEA [None]
